FAERS Safety Report 23675217 (Version 1)
Quarter: 2024Q1

REPORT INFORMATION
  Report Type: Report from Study
  Country: IS (occurrence: IS)
  Receive Date: 20240326
  Receipt Date: 20240326
  Transmission Date: 20240410
  Serious: Yes (Death, Other)
  Sender: FDA-Public Use
  Company Number: IS-CELLTRION INC.-2024IS007243

PATIENT

DRUGS (1)
  1. RITUXIMAB [Suspect]
     Active Substance: RITUXIMAB
     Indication: Sjogren^s syndrome
     Dosage: 2000 MILLIGRAM
     Route: 065

REACTIONS (2)
  - Colitis ulcerative [Fatal]
  - Intentional product use issue [Unknown]
